FAERS Safety Report 18265117 (Version 1)
Quarter: 2020Q3

REPORT INFORMATION
  Report Type: Spontaneous
  Country: US (occurrence: US)
  Receive Date: 20200915
  Receipt Date: 20200915
  Transmission Date: 20201103
  Serious: No
  Sender: FDA-Public Use
  Company Number: US-ASTRAZENECA-2020SF10491

PATIENT
  Sex: Male

DRUGS (6)
  1. LEVEMIR [Concomitant]
     Active Substance: INSULIN DETEMIR
     Indication: BLOOD GLUCOSE ABNORMAL
     Route: 058
  2. GLIPIZIDE. [Concomitant]
     Active Substance: GLIPIZIDE
     Indication: BLOOD GLUCOSE ABNORMAL
     Route: 048
  3. LISINOPRIL. [Concomitant]
     Active Substance: LISINOPRIL
     Indication: HYPERTENSION
     Route: 048
  4. BYDUREON [Suspect]
     Active Substance: EXENATIDE
     Indication: BLOOD INSULIN
     Route: 058
     Dates: start: 20200823
  5. METFORMIN [Concomitant]
     Active Substance: METFORMIN HYDROCHLORIDE
     Indication: BLOOD GLUCOSE ABNORMAL
     Route: 048
  6. LOTANOPROST [Concomitant]
     Indication: GLAUCOMA
     Route: 047

REACTIONS (5)
  - Chills [Recovered/Resolved]
  - Feeling cold [Unknown]
  - Headache [Recovered/Resolved]
  - Cough [Recovered/Resolved]
  - Feeling hot [Recovered/Resolved]

NARRATIVE: CASE EVENT DATE: 20200823
